FAERS Safety Report 20973611 (Version 1)
Quarter: 2022Q2

REPORT INFORMATION
  Report Type: Spontaneous
  Country: US (occurrence: US)
  Receive Date: 20220617
  Receipt Date: 20220617
  Transmission Date: 20220721
  Serious: No
  Sender: FDA-Public Use
  Company Number: US-JNJFOC-20220611397

PATIENT
  Sex: Male

DRUGS (2)
  1. TREMFYA [Interacting]
     Active Substance: GUSELKUMAB
     Indication: Psoriatic arthropathy
     Route: 058
     Dates: start: 20220521
  2. TREMFYA [Interacting]
     Active Substance: GUSELKUMAB

REACTIONS (2)
  - Vital functions abnormal [Unknown]
  - Drug interaction [Unknown]
